FAERS Safety Report 21987014 (Version 2)
Quarter: 2023Q1

REPORT INFORMATION
  Report Type: Spontaneous
  Country: BR (occurrence: BR)
  Receive Date: 20230213
  Receipt Date: 20230227
  Transmission Date: 20230418
  Serious: Yes (Hospitalization)
  Sender: FDA-Public Use
  Company Number: BR-PFIZER INC-PV202300023710

PATIENT
  Sex: Female
  Weight: 63 kg

DRUGS (10)
  1. AVIBACTAM SODIUM\CEFTAZIDIME [Suspect]
     Active Substance: AVIBACTAM SODIUM\CEFTAZIDIME
     Indication: Septic shock
     Dosage: 2.5 G, 3X/DAY
     Route: 042
     Dates: start: 20230125, end: 20230128
  2. AVIBACTAM SODIUM\CEFTAZIDIME [Suspect]
     Active Substance: AVIBACTAM SODIUM\CEFTAZIDIME
     Dosage: 2.5 G, 3X/DAY
     Route: 042
     Dates: start: 20230125, end: 20230128
  3. MEROPENEM [Suspect]
     Active Substance: MEROPENEM
     Indication: Product used for unknown indication
     Dosage: 2 G, 3X/DAY
     Route: 042
     Dates: start: 20221228, end: 20230123
  4. MEROPENEM [Suspect]
     Active Substance: MEROPENEM
     Dosage: 2 G, 3X/DAY
     Route: 042
     Dates: start: 20221228, end: 20230123
  5. VANCOMYCIN HYDROCHLORIDE [Suspect]
     Active Substance: VANCOMYCIN HYDROCHLORIDE
     Indication: Product used for unknown indication
     Dosage: 900 MG, Q12H
     Route: 042
     Dates: start: 20230103, end: 20230123
  6. VANCOMYCIN HYDROCHLORIDE [Suspect]
     Active Substance: VANCOMYCIN HYDROCHLORIDE
     Dosage: 900 MG, Q12H
     Route: 042
     Dates: start: 20230103, end: 20230123
  7. VANCOMYCIN HYDROCHLORIDE [Suspect]
     Active Substance: VANCOMYCIN HYDROCHLORIDE
     Dosage: 900 MG, Q12H
     Route: 042
     Dates: start: 20230103, end: 20230123
  8. VANCOMYCIN HYDROCHLORIDE [Suspect]
     Active Substance: VANCOMYCIN HYDROCHLORIDE
     Dosage: 900 MG, Q12H
     Route: 042
     Dates: start: 20230103, end: 20230123
  9. HERBALS [Concomitant]
     Active Substance: HERBALS
     Dosage: UNK
     Dates: end: 20230125
  10. TYLENOL [Concomitant]
     Active Substance: ACETAMINOPHEN
     Dosage: UNK
     Dates: end: 20230125

REACTIONS (10)
  - Vasculitis [Recovered/Resolved]
  - Rash [Recovered/Resolved]
  - Skin lesion [Recovered/Resolved]
  - Macule [Recovered/Resolved]
  - Face oedema [Recovered/Resolved]
  - Localised oedema [Recovered/Resolved]
  - Eye oedema [Recovered/Resolved]
  - Drug hypersensitivity [Recovered/Resolved]
  - Swelling of eyelid [Recovered/Resolved]
  - Pruritus [Recovered/Resolved]

NARRATIVE: CASE EVENT DATE: 20230115
